FAERS Safety Report 7386267-9 (Version None)
Quarter: 2011Q1

REPORT INFORMATION
  Report Type: 
  Country: None (occurrence: None)
  Receive Date: 20110331
  Receipt Date: 20110323
  Transmission Date: 20110831
  Serious: Yes (Hospitalization)
  Sender: FDA-Public Use
  Company Number: FR-B.I. PHARMACEUTICALS,INC./RIDGEFIELD-2011-FF-00294FF

PATIENT
  Age: 87 Year
  Sex: Female

DRUGS (7)
  1. VASTAREL [Concomitant]
     Indication: HEARING IMPAIRED
     Dosage: 70 MG
     Route: 048
  2. IRBESARTAN [Concomitant]
     Indication: HYPERTENSION
     Dosage: 75 MG
     Route: 048
  3. INIPOMP [Concomitant]
     Dosage: 20 MG
     Route: 048
     Dates: start: 20101018
  4. FUMAFER [Concomitant]
     Indication: ANAEMIA POSTOPERATIVE
     Dosage: 400 MG
     Route: 048
     Dates: start: 20101019
  5. LERCANIDIPINE [Concomitant]
     Indication: HYPERTENSION
     Route: 048
  6. DAFALGAN [Concomitant]
     Indication: PAIN
     Dosage: 4000 MG
     Route: 048
     Dates: start: 20101013
  7. PRADAXA [Suspect]
     Indication: THROMBOSIS PROPHYLAXIS
     Dosage: 150 MG
     Route: 048
     Dates: start: 20101013, end: 20101019

REACTIONS (2)
  - DRUG INEFFECTIVE [None]
  - PHLEBITIS [None]
